FAERS Safety Report 21603981 (Version 1)
Quarter: 2022Q4

REPORT INFORMATION
  Report Type: Spontaneous
  Country: CN (occurrence: CN)
  Receive Date: 20221116
  Receipt Date: 20221116
  Transmission Date: 20230112
  Serious: Yes (Other)
  Sender: FDA-Public Use
  Company Number: CN-Merck Healthcare KGaA-9363162

PATIENT
  Age: 43 Year
  Sex: Female
  Weight: 43 kg

DRUGS (4)
  1. ERBITUX [Suspect]
     Active Substance: CETUXIMAB
     Indication: Ovarian cancer
     Dosage: 700 MG, UNK
     Route: 041
     Dates: start: 20220923, end: 20220923
  2. FLUOROURACIL [Suspect]
     Active Substance: FLUOROURACIL
     Indication: Ovarian cancer
     Dosage: 0.5 G, UNKNOWN
     Route: 040
     Dates: start: 20220923, end: 20220923
  3. FLUOROURACIL [Suspect]
     Active Substance: FLUOROURACIL
     Dosage: 4.4 G, UNKNOWN
     Route: 041
     Dates: start: 20220923, end: 20220923
  4. OXALIPLATIN [Suspect]
     Active Substance: OXALIPLATIN
     Indication: Ovarian cancer
     Dosage: 200 MG, UNK
     Route: 041
     Dates: start: 20220923, end: 20220923

REACTIONS (1)
  - Hepatic failure [Recovering/Resolving]

NARRATIVE: CASE EVENT DATE: 20221006
